FAERS Safety Report 20166571 (Version 2)
Quarter: 2022Q2

REPORT INFORMATION
  Report Type: Spontaneous
  Country: US (occurrence: US)
  Receive Date: 20211209
  Receipt Date: 20220526
  Transmission Date: 20220721
  Serious: Yes (Hospitalization, Other)
  Sender: FDA-Public Use
  Company Number: US-009507513-2102USA000831

PATIENT
  Sex: Male

DRUGS (7)
  1. ZOSTAVAX [Suspect]
     Active Substance: VARICELLA-ZOSTER VIRUS STRAIN OKA/MERCK LIVE ANTIGEN
     Indication: Prophylaxis
     Dosage: .65 MILLILITER
     Route: 058
     Dates: start: 20141030
  2. STERILE DILUENT (WATER) [Suspect]
     Active Substance: WATER
     Dosage: UNK UNK, ONCE
     Route: 058
     Dates: start: 20141030, end: 20141030
  3. SEROQUEL [Suspect]
     Active Substance: QUETIAPINE FUMARATE
     Dosage: ONE-HALF TABLET BY MOUTH EVERY MORNING
     Route: 048
     Dates: end: 20150506
  4. SEROQUEL [Suspect]
     Active Substance: QUETIAPINE FUMARATE
     Dosage: ONE TABLET BY MOUTH AT BEDTIME
     Route: 048
     Dates: end: 20140506
  5. TRIAMCINOLONE ACETONIDE [Concomitant]
     Active Substance: TRIAMCINOLONE ACETONIDE
     Dosage: THIN FILM TO AFFECTED AREA TWICE A DAY
     Route: 061
  6. DOCUSATE [Concomitant]
     Active Substance: DOCUSATE
     Dosage: TWICE A DAY
     Route: 048
  7. SENNOSIDES [Concomitant]
     Active Substance: SENNOSIDES
     Dosage: UNK
     Route: 048

REACTIONS (16)
  - Urethral stenosis [Unknown]
  - Adverse event [Unknown]
  - Rash vesicular [Unknown]
  - Blood cholesterol increased [Unknown]
  - Folliculitis [Unknown]
  - Neurodermatitis [Unknown]
  - Varicose vein [Unknown]
  - Cognitive disorder [Unknown]
  - Stasis dermatitis [Unknown]
  - Adverse event [Unknown]
  - Drug ineffective [Unknown]
  - Back pain [Unknown]
  - Benign prostatic hyperplasia [Unknown]
  - Wheezing [Unknown]
  - Productive cough [Unknown]
  - Dyspepsia [Unknown]

NARRATIVE: CASE EVENT DATE: 20150501
